FAERS Safety Report 20559785 (Version 2)
Quarter: 2022Q1

REPORT INFORMATION
  Report Type: Spontaneous
  Country: TR (occurrence: TR)
  Receive Date: 20220307
  Receipt Date: 20220310
  Transmission Date: 20220423
  Serious: Yes (Life-Threatening, Other)
  Sender: FDA-Public Use
  Company Number: TR-NOVARTISPH-NVSC2022TR051429

PATIENT
  Age: 41 Year
  Sex: Female
  Weight: 36 kg

DRUGS (2)
  1. TEGRETOL [Suspect]
     Active Substance: CARBAMAZEPINE
     Indication: Product used for unknown indication
     Dosage: 2X1, BID
     Route: 065
     Dates: start: 202109, end: 202109
  2. ESCITALOPRAM OXALATE [Concomitant]
     Active Substance: ESCITALOPRAM OXALATE
     Indication: Product used for unknown indication
     Dosage: UNK
     Route: 065

REACTIONS (7)
  - Near death experience [Unknown]
  - Weight decreased [Unknown]
  - Throat tightness [Unknown]
  - Condition aggravated [Unknown]
  - Dysphagia [Not Recovered/Not Resolved]
  - Muscle contractions involuntary [Recovering/Resolving]
  - Incorrect product dosage form administered [Unknown]
